FAERS Safety Report 4645126-2 (Version None)
Quarter: 2005Q2

REPORT INFORMATION
  Report Type: 
  Country: None (occurrence: None)
  Receive Date: 20050426
  Receipt Date: 20050420
  Transmission Date: 20051028
  Serious: Yes (Other)
  Sender: FDA-Public Use
  Company Number: GB-JNJFOC-20050405095

PATIENT
  Age: 47 Year
  Sex: Male

DRUGS (11)
  1. SUBLIMAZE [Suspect]
     Indication: DRUG USE FOR UNKNOWN INDICATION
     Route: 042
  2. HALOPERIDOL [Interacting]
     Indication: DRUG USE FOR UNKNOWN INDICATION
     Route: 065
  3. ZYVOX [Interacting]
     Indication: STAPHYLOCOCCAL INFECTION
     Route: 042
  4. DOXAZOSIN [Interacting]
     Indication: DRUG USE FOR UNKNOWN INDICATION
     Route: 049
  5. PROCYCLIDINE HYDROCHLORIDE 2MG TAB [Interacting]
     Indication: DRUG USE FOR UNKNOWN INDICATION
     Route: 049
  6. ATENOLOL [Interacting]
     Indication: DRUG USE FOR UNKNOWN INDICATION
     Route: 049
  7. RIFAMPICIN [Interacting]
     Indication: DRUG USE FOR UNKNOWN INDICATION
     Route: 042
  8. AMISULPRIDE [Interacting]
     Indication: DRUG USE FOR UNKNOWN INDICATION
     Route: 049
  9. OMEPRAZOLE [Interacting]
     Indication: DRUG USE FOR UNKNOWN INDICATION
     Route: 065
  10. PANTOPRAZOLE SODIUM [Interacting]
     Indication: DRUG USE FOR UNKNOWN INDICATION
     Route: 065
  11. ZOPICLONE [Interacting]
     Indication: DRUG USE FOR UNKNOWN INDICATION
     Route: 065

REACTIONS (2)
  - DRUG INTERACTION [None]
  - HYPERTENSION [None]
